FAERS Safety Report 10555918 (Version 2)
Quarter: 2014Q4

REPORT INFORMATION
  Report Type: Spontaneous
  Country: US (occurrence: US)
  Receive Date: 20141030
  Receipt Date: 20141208
  Transmission Date: 20150529
  Serious: No
  Sender: FDA-Public Use
  Company Number: US-PFIZER INC-2014298353

PATIENT
  Age: 64 Year
  Sex: Male

DRUGS (2)
  1. XELJANZ [Suspect]
     Active Substance: TOFACITINIB CITRATE
     Indication: RHEUMATOID ARTHRITIS
     Dosage: 5 MG, TWICE A DAY
     Route: 048
     Dates: start: 201406
  2. SULFASALAZINE. [Suspect]
     Active Substance: SULFASALAZINE
     Dosage: UNK

REACTIONS (1)
  - Dry eye [Not Recovered/Not Resolved]
